FAERS Safety Report 7773166-3 (Version None)
Quarter: 2011Q3

REPORT INFORMATION
  Report Type: 
  Country: None (occurrence: None)
  Receive Date: 20110922
  Receipt Date: 20100727
  Transmission Date: 20111222
  Serious: No
  Sender: FDA-Public Use
  Company Number: US-ASTRAZENECA-2010SE29686

PATIENT
  Age: 55 Year
  Sex: Female

DRUGS (5)
  1. SEROQUEL [Suspect]
     Route: 048
  2. ADDERALL 5 [Concomitant]
  3. RISPERDAL [Concomitant]
  4. SEROQUEL [Suspect]
     Indication: BIPOLAR DISORDER
     Route: 048
  5. SEROQUEL [Suspect]
     Route: 048

REACTIONS (3)
  - TARDIVE DYSKINESIA [None]
  - EXTRAPYRAMIDAL DISORDER [None]
  - DRUG DOSE OMISSION [None]
